FAERS Safety Report 10672357 (Version 1)
Quarter: 2014Q4

REPORT INFORMATION
  Report Type: Spontaneous
  Country: FR (occurrence: FR)
  Receive Date: 20141223
  Receipt Date: 20141223
  Transmission Date: 20150529
  Serious: Yes (Other)
  Sender: FDA-Public Use
  Company Number: FR-PFIZER INC-2014349726

PATIENT
  Age: 27 Year
  Sex: Female

DRUGS (2)
  1. SYNAREL [Suspect]
     Active Substance: NAFARELIN ACETATE
     Indication: IN VITRO FERTILISATION
     Dosage: UNK
     Route: 045
     Dates: start: 201312, end: 201312
  2. FOLLITROPIN BETA [Suspect]
     Active Substance: FOLLITROPIN
     Indication: IN VITRO FERTILISATION
     Dosage: UNK
     Route: 058
     Dates: start: 201312, end: 201312

REACTIONS (2)
  - Endometriosis [Recovered/Resolved]
  - Disease progression [Recovered/Resolved]

NARRATIVE: CASE EVENT DATE: 201312
